FAERS Safety Report 13047194 (Version 1)
Quarter: 2016Q4

REPORT INFORMATION
  Report Type: Spontaneous
  Country: AU (occurrence: AU)
  Receive Date: 20161220
  Receipt Date: 20161220
  Transmission Date: 20170207
  Serious: Yes (Other)
  Sender: FDA-Public Use
  Company Number: AU-BRISTOL-MYERS SQUIBB COMPANY-BMS-2016-107007

PATIENT
  Age: 71 Year
  Sex: Male

DRUGS (1)
  1. HYDREA [Suspect]
     Active Substance: HYDROXYUREA
     Indication: PRODUCT USED FOR UNKNOWN INDICATION
     Dosage: NOT AVAILABLE
     Route: 065

REACTIONS (7)
  - Erythema [Unknown]
  - Nephrolithiasis [Unknown]
  - Headache [Unknown]
  - Dry skin [Unknown]
  - Hyperhidrosis [Unknown]
  - Blood uric acid increased [Unknown]
  - Arthralgia [Unknown]
